FAERS Safety Report 4801686-X (Version None)
Quarter: 2005Q4

REPORT INFORMATION
  Report Type: 
  Country: None (occurrence: None)
  Receive Date: 20051018
  Receipt Date: 20051014
  Transmission Date: 20060501
  Serious: Yes (Other)
  Sender: FDA-Public Use
  Company Number: US-GLAXOSMITHKLINE-A0578299A

PATIENT
  Age: 48 Year
  Sex: Male

DRUGS (13)
  1. AMOXICILLIN [Suspect]
     Indication: SINUSITIS
     Route: 065
  2. AVANDIA [Suspect]
     Indication: DIABETES MELLITUS NON-INSULIN-DEPENDENT
     Dosage: 4MG PER DAY
     Route: 048
     Dates: start: 20051001
  3. LEVOXYL [Concomitant]
  4. BLOOD PRESSURE MEDICATION [Concomitant]
  5. ATENOLOL [Concomitant]
  6. COZAAR [Concomitant]
  7. NORVASC [Concomitant]
  8. METHADONE [Concomitant]
  9. PRILOSEC [Concomitant]
  10. PROTONIX [Concomitant]
  11. PREVACID [Concomitant]
  12. DIAZEPAM [Concomitant]
  13. ANDROGEL [Concomitant]

REACTIONS (4)
  - BLOOD GLUCOSE FLUCTUATION [None]
  - BLOOD GLUCOSE INCREASED [None]
  - DRUG INEFFECTIVE [None]
  - HYPOGLYCAEMIA [None]
